FAERS Safety Report 16687903 (Version 1)
Quarter: 2019Q4

REPORT INFORMATION
  Report Type: Spontaneous
  Country: US (occurrence: US)
  Receive Date: 20190808
  Receipt Date: 20190808
  Transmission Date: 20200122
  Serious: Yes (Disabling)
  Sender: FDA-Public Use
  Company Number: None

PATIENT
  Age: 39 Year
  Sex: Female
  Weight: 118.35 kg

DRUGS (14)
  1. AMERGE [Concomitant]
     Active Substance: NARATRIPTAN HYDROCHLORIDE
  2. FLORICET [Concomitant]
  3. MAGNESIUM [Concomitant]
     Active Substance: MAGNESIUM
  4. IRON [Concomitant]
     Active Substance: IRON
  5. HORMONE REPLACEMENT THERAPY PELLET [Concomitant]
  6. NEXIUM [Concomitant]
     Active Substance: ESOMEPRAZOLE MAGNESIUM
  7. ZYRTEC [Concomitant]
     Active Substance: CETIRIZINE HYDROCHLORIDE
  8. MULTIVITAMIN [Concomitant]
     Active Substance: VITAMINS
  9. RIBOFLAVIN [Concomitant]
     Active Substance: RIBOFLAVIN
  10. VIT D [Concomitant]
     Active Substance: VITAMIN D NOS
  11. AIMOVIG [Suspect]
     Active Substance: ERENUMAB-AOOE
     Indication: MIGRAINE PROPHYLAXIS
     Dosage: ?          OTHER FREQUENCY:ONCE A MONTH;?          THERAPY ONGOING: Y?
     Route: 030
     Dates: start: 20190328, end: 20190628
  12. LEXIPRO [Concomitant]
  13. LEVOTHYROXINE. [Concomitant]
     Active Substance: LEVOTHYROXINE
  14. TOPAMAX [Concomitant]
     Active Substance: TOPIRAMATE

REACTIONS (9)
  - Night sweats [None]
  - Pain in extremity [None]
  - Arthralgia [None]
  - Therapy cessation [None]
  - Dysstasia [None]
  - Therapeutic product effect incomplete [None]
  - Blood thyroid stimulating hormone increased [None]
  - Gait disturbance [None]
  - Hyperhidrosis [None]

NARRATIVE: CASE EVENT DATE: 20190421
